FAERS Safety Report 17470418 (Version 1)
Quarter: 2020Q1

REPORT INFORMATION
  Report Type: Spontaneous
  Country: US (occurrence: US)
  Receive Date: 20200227
  Receipt Date: 20200227
  Transmission Date: 20200409
  Serious: No
  Sender: FDA-Public Use
  Company Number: US-GALDERMA-US19046906

PATIENT
  Age: 10 Year
  Sex: Female

DRUGS (2)
  1. PROACTIV MD ADAPALENE ACNE TREATMENT [Suspect]
     Active Substance: ADAPALENE
     Indication: PRODUCT USED FOR UNKNOWN INDICATION
     Dosage: 0.1%
     Route: 061
     Dates: start: 20190316, end: 20190319
  2. PROACTIV MD DEEP CLEANSING FACE WASH [Concomitant]
     Active Substance: COSMETICS
     Indication: PRODUCT USED FOR UNKNOWN INDICATION
     Route: 061
     Dates: start: 20190316, end: 20190319

REACTIONS (5)
  - Skin burning sensation [Recovered/Resolved]
  - Scab [Recovered/Resolved]
  - Product use issue [Recovered/Resolved]
  - Dry skin [Recovered/Resolved]
  - Skin hyperpigmentation [Recovered/Resolved]

NARRATIVE: CASE EVENT DATE: 20190316
